FAERS Safety Report 15692131 (Version 1)
Quarter: 2018Q4

REPORT INFORMATION
  Report Type: Report from Study
  Country: GB (occurrence: GB)
  Receive Date: 20181205
  Receipt Date: 20181205
  Transmission Date: 20190205
  Serious: Yes (Death)
  Sender: FDA-Public Use
  Company Number: GB-MYLANLABS-2018M1088915

PATIENT

DRUGS (2)
  1. VINCRISTINE [Suspect]
     Active Substance: VINCRISTINE
     Indication: EWING^S SARCOMA
     Dosage: 1.5 MG/M2 ON DAY ONE OF EACH CHEMOTHERAPY CYCLE
     Route: 065
  2. DACTINOMYCIN [Suspect]
     Active Substance: DACTINOMYCIN
     Indication: EWING^S SARCOMA
     Dosage: 0.75 MG/M2 ON DAY 1 AND 2 OF EACH CHEMOTHERAPY CYCLE.
     Route: 065

REACTIONS (2)
  - Renal failure [Fatal]
  - Cardiac failure [Fatal]
